FAERS Safety Report 11391052 (Version 1)
Quarter: 2015Q3

REPORT INFORMATION
  Report Type: Spontaneous
  Country: US (occurrence: None)
  Receive Date: 20150814
  Receipt Date: 20150814
  Transmission Date: 20151125
  Serious: Yes (Hospitalization)
  Sender: FDA-Public Use
  Company Number: None

PATIENT
  Age: 63 Year
  Sex: Male
  Weight: 117 kg

DRUGS (2)
  1. ROPINIROLE. [Suspect]
     Active Substance: ROPINIROLE
     Route: 048
     Dates: start: 20111107
  2. CARBIDOPA/LEVODOPA [Suspect]
     Active Substance: CARBIDOPA\LEVODOPA
     Indication: PARKINSON^S DISEASE
     Route: 048
     Dates: start: 20110719

REACTIONS (10)
  - Aggression [None]
  - Muscle rigidity [None]
  - Anxiety [None]
  - Hallucination, visual [None]
  - Agitation [None]
  - Delirium [None]
  - Fear [None]
  - Intentional overdose [None]
  - Condition aggravated [None]
  - Delusion [None]

NARRATIVE: CASE EVENT DATE: 20150807
